FAERS Safety Report 15201936 (Version 5)
Quarter: 2018Q4

REPORT INFORMATION
  Report Type: Report from Study
  Country: BR (occurrence: BR)
  Receive Date: 20180726
  Receipt Date: 20181116
  Transmission Date: 20190204
  Serious: Yes (Other)
  Sender: FDA-Public Use
  Company Number: PHHY2018BR055433

PATIENT
  Age: 58 Year
  Sex: Female
  Weight: 67 kg

DRUGS (11)
  1. NORTRIPTYLIN [Concomitant]
     Active Substance: NORTRIPTYLINE
     Indication: ANTIDEPRESSANT THERAPY
  2. ESOMEPRAZOLE. [Concomitant]
     Active Substance: ESOMEPRAZOLE MAGNESIUM
     Indication: GASTROOESOPHAGEAL REFLUX DISEASE
     Dosage: 40 MG, UNK
     Route: 065
  3. BROMAZEPAM [Concomitant]
     Active Substance: BROMAZEPAM
     Indication: SLEEP DISORDER
     Dosage: 5 MG, UNK
     Route: 065
  4. ACLASTA [Suspect]
     Active Substance: ZOLEDRONIC ACID
     Indication: OSTEOPOROSIS
     Dosage: 1 DF (5 MG/100 ML), Q12MO
     Route: 042
     Dates: start: 2015
  5. NORTRIPTYLIN [Concomitant]
     Active Substance: NORTRIPTYLINE
     Indication: SLEEP DISORDER
     Dosage: 25 MG, UNK
     Route: 065
  6. CHOLECALCIFEROL [Concomitant]
     Active Substance: CHOLECALCIFEROL
     Indication: OSTEOPOROSIS
     Dosage: 1 DF, (600MG/400IU), 1 YEAR
     Route: 065
  7. CALCIUM [Concomitant]
     Active Substance: CALCIUM
     Indication: OSTEOPOROSIS
     Dosage: 1 YEAR
     Route: 065
  8. ACLASTA [Suspect]
     Active Substance: ZOLEDRONIC ACID
     Dosage: 1 DF (5 MG/100 ML), Q12MO
     Route: 042
     Dates: start: 2016, end: 2016
  9. PANTOPRAZOLE [Concomitant]
     Active Substance: PANTOPRAZOLE
     Indication: GASTROOESOPHAGEAL REFLUX DISEASE
     Dosage: 1 YEARS
     Route: 065
  10. VITAMIN D3 [Concomitant]
     Active Substance: CHOLECALCIFEROL
     Indication: OSTEOPOROSIS
     Dosage: UNK
     Route: 065
  11. BROMAZEPAM [Concomitant]
     Active Substance: BROMAZEPAM
     Indication: ANTIDEPRESSANT THERAPY

REACTIONS (10)
  - Concomitant disease aggravated [Recovered/Resolved]
  - Blood urine present [Recovering/Resolving]
  - Urinary tract infection [Recovering/Resolving]
  - Vaginal discharge [Recovering/Resolving]
  - Urinary tract infection [Recovered/Resolved]
  - Dysuria [Not Recovered/Not Resolved]
  - Urinary tract infection [Recovered/Resolved]
  - Abdominal pain [Recovering/Resolving]
  - Condition aggravated [Recovering/Resolving]
  - Pain in extremity [Recovering/Resolving]

NARRATIVE: CASE EVENT DATE: 2016
